FAERS Safety Report 6636532-5 (Version None)
Quarter: 2010Q1

REPORT INFORMATION
  Report Type: 
  Country: None (occurrence: None)
  Receive Date: 20100316
  Receipt Date: 20100217
  Transmission Date: 20100710
  Serious: Yes (Other)
  Sender: FDA-Public Use
  Company Number: JP-ROCHE-689837

PATIENT

DRUGS (1)
  1. TAMIFLU [Suspect]
     Indication: INFLUENZA
     Dosage: FORM: ORAL FORMATION (NOT OTHERWISE SPECIFIED).
     Route: 064
     Dates: start: 20100112, end: 20100117

REACTIONS (5)
  - CAESAREAN SECTION [None]
  - DRUG EXPOSURE DURING PREGNANCY [None]
  - MECONIUM ILEUS [None]
  - SEPSIS NEONATAL [None]
  - SMALL FOR DATES BABY [None]
